FAERS Safety Report 25412560 (Version 1)
Quarter: 2025Q2

REPORT INFORMATION
  Report Type: Spontaneous
  Country: US (occurrence: US)
  Receive Date: 20250609
  Receipt Date: 20250609
  Transmission Date: 20250717
  Serious: Yes (Hospitalization, Other)
  Sender: NOVARTIS
  Company Number: US-002147023-NVSC2025US088680

PATIENT
  Sex: Male

DRUGS (9)
  1. IMATINIB [Suspect]
     Active Substance: IMATINIB
     Indication: Philadelphia chromosome negative
     Route: 065
  2. IMATINIB [Suspect]
     Active Substance: IMATINIB
     Indication: Acute lymphocytic leukaemia
     Dosage: 500 MG, QD
     Route: 065
  3. FLUCONAZOLE [Concomitant]
     Active Substance: FLUCONAZOLE
     Indication: Product used for unknown indication
     Route: 065
  4. MARINOL [Concomitant]
     Active Substance: DRONABINOL
     Indication: Product used for unknown indication
     Route: 065
  5. VINCRISTINE [Concomitant]
     Active Substance: VINCRISTINE
     Indication: Product used for unknown indication
     Route: 065
  6. Cal [Concomitant]
     Indication: Product used for unknown indication
     Route: 065
  7. OXYCODONE [Concomitant]
     Active Substance: OXYCODONE
     Indication: Product used for unknown indication
     Route: 065
  8. ZOFRAN [Concomitant]
     Active Substance: ONDANSETRON HYDROCHLORIDE
     Indication: Product used for unknown indication
     Route: 065
  9. CANNABIS SATIVA SUBSP. INDICA TOP [Concomitant]
     Active Substance: CANNABIS SATIVA SUBSP. INDICA TOP
     Indication: Product used for unknown indication
     Route: 065

REACTIONS (3)
  - Vomiting [Unknown]
  - Weight decreased [Unknown]
  - Underdose [Unknown]
